FAERS Safety Report 9354347 (Version 2)
Quarter: 2013Q2

REPORT INFORMATION
  Report Type: Spontaneous
  Country: FR (occurrence: FR)
  Receive Date: 20130618
  Receipt Date: 20130625
  Transmission Date: 20140414
  Serious: Yes (Hospitalization, Other)
  Sender: FDA-Public Use
  Company Number: FR-PFIZER INC-2013180034

PATIENT
  Age: 64 Year
  Sex: Female

DRUGS (5)
  1. TRIATEC [Suspect]
     Dosage: UNK
     Route: 048
     Dates: end: 20130426
  2. METFORMIN HCL [Suspect]
     Dosage: UNK
     Route: 048
     Dates: end: 20130425
  3. PAMIDRONATE DISODIUM [Suspect]
     Dosage: 1 DF, SINGLE
     Route: 042
     Dates: start: 20130410, end: 20130410
  4. VISIPAQUE [Suspect]
     Dosage: 1 DF, SINGLE
     Route: 042
     Dates: start: 20130311, end: 20130411
  5. FEMARA [Suspect]
     Dosage: UNK
     Route: 048
     Dates: end: 20130422

REACTIONS (12)
  - Drug reaction with eosinophilia and systemic symptoms [Recovered/Resolved]
  - General physical health deterioration [Unknown]
  - Hyperthermia [Unknown]
  - Atrial fibrillation [Unknown]
  - Hypotension [Unknown]
  - Neutrophil count increased [Unknown]
  - Blood creatinine increased [Unknown]
  - C-reactive protein increased [Unknown]
  - Condition aggravated [Recovering/Resolving]
  - Oliguria [Unknown]
  - Hepatocellular injury [Recovering/Resolving]
  - Epstein-Barr virus infection [Unknown]
